FAERS Safety Report 9570966 (Version 3)
Quarter: 2015Q2

REPORT INFORMATION
  Report Type: Spontaneous
  Country: JP (occurrence: JP)
  Receive Date: 20131001
  Receipt Date: 20150410
  Transmission Date: 20150821
  Serious: Yes (Life-Threatening, Hospitalization)
  Sender: FDA-Public Use
  Company Number: JP-JNJFOC-20130917368

PATIENT
  Age: 86 Year
  Sex: Female
  Weight: 42 kg

DRUGS (8)
  1. EPADEL [Concomitant]
     Active Substance: ICOSAPENT
     Indication: PRODUCT USED FOR UNKNOWN INDICATION
     Route: 048
  2. MUCODYNE [Concomitant]
     Active Substance: CARBOCYSTEINE
     Indication: PRODUCT USED FOR UNKNOWN INDICATION
     Route: 048
  3. LORELCO [Concomitant]
     Active Substance: PROBUCOL
     Indication: PRODUCT USED FOR UNKNOWN INDICATION
     Route: 048
  4. MAGMITT [Concomitant]
     Active Substance: MAGNESIUM OXIDE
     Indication: PRODUCT USED FOR UNKNOWN INDICATION
     Route: 048
  5. REMINYL [Suspect]
     Active Substance: GALANTAMINE
     Indication: DEMENTIA ALZHEIMER^S TYPE
     Route: 048
     Dates: start: 20130911, end: 20130927
  6. BLOPRESS [Concomitant]
     Active Substance: CANDESARTAN CILEXETIL
     Indication: PRODUCT USED FOR UNKNOWN INDICATION
     Route: 048
  7. NICERGOLINE [Concomitant]
     Active Substance: NICERGOLINE
     Indication: PRODUCT USED FOR UNKNOWN INDICATION
     Route: 048
  8. YOUCOBAL [Concomitant]
     Indication: PRODUCT USED FOR UNKNOWN INDICATION
     Route: 048

REACTIONS (1)
  - Stevens-Johnson syndrome [Recovering/Resolving]

NARRATIVE: CASE EVENT DATE: 20130925
